FAERS Safety Report 8346413-7 (Version None)
Quarter: 2012Q2

REPORT INFORMATION
  Report Type: 
  Country: None (occurrence: None)
  Receive Date: 20120507
  Receipt Date: 20120507
  Transmission Date: 20120825
  Serious: Yes (Other)
  Sender: FDA-Public Use
  Company Number: None

PATIENT
  Sex: Female

DRUGS (1)
  1. SIMPONI [Suspect]
     Dosage: 50MG QMN SQ
     Route: 058
     Dates: start: 20110811, end: 20120410

REACTIONS (2)
  - URTICARIA [None]
  - RASH GENERALISED [None]
